FAERS Safety Report 9226709 (Version 1)
Quarter: 2013Q2

REPORT INFORMATION
  Report Type: Spontaneous
  Country: US (occurrence: US)
  Receive Date: 20130412
  Receipt Date: 20130412
  Transmission Date: 20140414
  Serious: No
  Sender: FDA-Public Use
  Company Number: US-PFIZER INC-2013111977

PATIENT
  Age: 62 Year
  Sex: Female
  Weight: 54.42 kg

DRUGS (1)
  1. LEVOXYL [Suspect]
     Indication: THYROID DISORDER
     Dosage: UNK

REACTIONS (6)
  - Headache [Not Recovered/Not Resolved]
  - Migraine [Not Recovered/Not Resolved]
  - Feeling hot [Not Recovered/Not Resolved]
  - Abdominal distension [Not Recovered/Not Resolved]
  - Nausea [Not Recovered/Not Resolved]
  - Dizziness [Not Recovered/Not Resolved]
